FAERS Safety Report 8765649 (Version 2)
Quarter: 2012Q4

REPORT INFORMATION
  Report Type: 
  Country: BR (occurrence: BR)
  Receive Date: 20120903
  Receipt Date: 20121019
  Transmission Date: 20130627
  Serious: Yes (Other)
  Sender: FDA-Public Use
  Company Number: PHHY2012BR075103

PATIENT
  Sex: Female
  Weight: 62 kg

DRUGS (8)
  1. FORASEQ [Suspect]
     Indication: ASTHMA
     Dosage: UNK (Dose of 1 inhalation every 12 hours)
  2. INFLUENZA VACCINES [Concomitant]
     Indication: RHINITIS
  3. RUTIN [Concomitant]
     Indication: VARICOSE ULCERATION
     Dosage: UNK (1 tablet)
  4. HYDROCHLOROTHIAZIDE [Concomitant]
     Indication: VARICOSE ULCERATION
     Dosage: 1 DF
  5. CENTELLA ASIATICA [Concomitant]
     Indication: VARICOSE ULCERATION
     Dosage: UNK (1 tablet)
  6. OMEPRAZOL [Concomitant]
     Indication: GASTROOESOPHAGEAL REFLUX DISEASE
     Dosage: 1 DF
  7. MOTILIUM [Concomitant]
     Indication: GASTROOESOPHAGEAL REFLUX DISEASE
     Dosage: 1 DF
  8. DIURETICS [Concomitant]
     Dosage: 1 DF, Q12H
     Route: 048

REACTIONS (14)
  - Hepatic steatosis [Recovering/Resolving]
  - Urinary tract infection [Recovered/Resolved]
  - Neoplasm malignant [Recovered/Resolved]
  - Abscess limb [Unknown]
  - Asthma [Recovered/Resolved]
  - Total lung capacity decreased [Not Recovered/Not Resolved]
  - Dyspnoea [Recovered/Resolved]
  - Dizziness [Recovered/Resolved]
  - Limb discomfort [Recovered/Resolved]
  - Musculoskeletal discomfort [Recovered/Resolved]
  - Vision blurred [Recovered/Resolved]
  - Fat tissue increased [Recovered/Resolved]
  - Swelling [Recovered/Resolved]
  - Wrong technique in drug usage process [Unknown]
